FAERS Safety Report 14595079 (Version 1)
Quarter: 2018Q1

REPORT INFORMATION
  Report Type: Spontaneous
  Country: US (occurrence: US)
  Receive Date: 20180302
  Receipt Date: 20180302
  Transmission Date: 20180509
  Serious: No
  Sender: FDA-Public Use
  Company Number: US-AKORN PHARMACEUTICALS-2017AKN00797

PATIENT
  Age: 45 Year
  Sex: Female
  Weight: 72.56 kg

DRUGS (5)
  1. VITAMIN D2 [Concomitant]
     Active Substance: ERGOCALCIFEROL
  2. MYORISAN [Suspect]
     Active Substance: ISOTRETINOIN
     Dosage: 40 MG, 2X/DAY
     Route: 048
     Dates: start: 20170307, end: 20170609
  3. TRETINOIN 0.05% TOPICAL CREAM [Concomitant]
  4. ETHINYL ESTRADIOL-NORETHINDRONE 20MCG-1MG [Concomitant]
     Dosage: UNK
     Route: 048
  5. SERTRALINE HYDROCHLORIDE. [Concomitant]
     Active Substance: SERTRALINE HYDROCHLORIDE
     Dosage: UNK UNK, 1X/DAY
     Route: 048

REACTIONS (8)
  - Vision blurred [Unknown]
  - Arthralgia [Unknown]
  - Thirst [Unknown]
  - Blood cholesterol increased [Unknown]
  - Dyspepsia [Unknown]
  - Dry skin [Recovering/Resolving]
  - Insomnia [Unknown]
  - Chapped lips [Recovering/Resolving]

NARRATIVE: CASE EVENT DATE: 2017
